FAERS Safety Report 7620478-X (Version None)
Quarter: 2011Q3

REPORT INFORMATION
  Report Type: 
  Country: None (occurrence: None)
  Receive Date: 20110719
  Receipt Date: 20110713
  Transmission Date: 20111222
  Serious: Yes (Other)
  Sender: FDA-Public Use
  Company Number: KR-PFIZER INC-2011158755

PATIENT
  Sex: Male

DRUGS (2)
  1. TOVIAZ [Suspect]
     Indication: BENIGN PROSTATIC HYPERPLASIA
     Dosage: 1 TABLET, 1X/DAY
     Route: 048
     Dates: start: 20101101
  2. CARDURA [Suspect]
     Indication: BENIGN PROSTATIC HYPERPLASIA
     Dosage: 1 TABLET, 1X/DAY
     Route: 048
     Dates: start: 20101101

REACTIONS (3)
  - GASTRIC ULCER [None]
  - GASTRITIS [None]
  - DRUG INEFFECTIVE [None]
